FAERS Safety Report 5368854-2 (Version None)
Quarter: 2007Q2

REPORT INFORMATION
  Report Type: 
  Country: None (occurrence: None)
  Receive Date: 20070625
  Receipt Date: 20061027
  Transmission Date: 20071010
  Serious: No
  Sender: FDA-Public Use
  Company Number: US-ASTRAZENECA-2006UW20690

PATIENT

DRUGS (1)
  1. CRESTOR [Suspect]
     Route: 048
     Dates: start: 20041001

REACTIONS (2)
  - LABORATORY TEST ABNORMAL [None]
  - VIRAL INFECTION [None]
